FAERS Safety Report 10066273 (Version 1)
Quarter: 2014Q2

REPORT INFORMATION
  Report Type: Spontaneous
  Country: US (occurrence: None)
  Receive Date: 20140402
  Receipt Date: 20140402
  Transmission Date: 20141212
  Serious: Yes (Life-Threatening, Hospitalization)
  Sender: FDA-Public Use
  Company Number: 2013STPI000364

PATIENT
  Age: 18 Year
  Sex: Male
  Weight: 56.1 kg

DRUGS (7)
  1. ONCASPAR [Suspect]
     Indication: ACUTE LYMPHOCYTIC LEUKAEMIA
     Route: 042
     Dates: start: 20121229, end: 20121229
  2. VINCRISTINE SULFATE [Concomitant]
  3. ACETAMINOPHEN (PARACETAMOL) [Concomitant]
  4. DIPHENHYDRAMINE HCL (DIPHENHYDRAMINE HYDROCHLORIDE) [Concomitant]
  5. ZOFRAN (ONDANSETRON HYDROCHLORIDE) [Concomitant]
  6. HYDROCORTISONE (HYDROCORTISONE VALERATE) [Concomitant]
  7. PEPCID (FAMOTIDINE) [Concomitant]

REACTIONS (6)
  - Anaphylactic reaction [None]
  - Chest discomfort [None]
  - Nausea [None]
  - Sinus tachycardia [None]
  - Anxiety [None]
  - Blood pressure increased [None]
